FAERS Safety Report 6726383-5 (Version None)
Quarter: 2010Q2

REPORT INFORMATION
  Report Type: 
  Country: None (occurrence: None)
  Receive Date: 20100514
  Receipt Date: 20100506
  Transmission Date: 20101027
  Serious: Yes (Hospitalization)
  Sender: FDA-Public Use
  Company Number: B0638576A

PATIENT
  Sex: Male

DRUGS (3)
  1. LAMICTAL [Suspect]
     Indication: EPILEPSY
     Dosage: 40MG PER DAY
     Route: 048
     Dates: start: 20100205, end: 20100223
  2. KEPPRA [Suspect]
     Indication: EPILEPSY
     Dosage: 2G PER DAY
     Route: 048
     Dates: start: 20080101, end: 20100302
  3. DEPAKIN [Suspect]
     Indication: EPILEPSY
     Dosage: 1G PER DAY
     Route: 048
     Dates: start: 20000101, end: 20100302

REACTIONS (10)
  - ALANINE AMINOTRANSFERASE INCREASED [None]
  - ASPARTATE AMINOTRANSFERASE INCREASED [None]
  - CONJUNCTIVAL HYPERAEMIA [None]
  - DRUG INTERACTION [None]
  - LIP OEDEMA [None]
  - ORAL DISORDER [None]
  - PRURITUS [None]
  - RASH PAPULAR [None]
  - STEVENS-JOHNSON SYNDROME [None]
  - THROMBOCYTOPENIA [None]
